FAERS Safety Report 9200722 (Version 1)
Quarter: 2013Q2

REPORT INFORMATION
  Report Type: Spontaneous
  Country: FR (occurrence: FR)
  Receive Date: 20130401
  Receipt Date: 20130401
  Transmission Date: 20140414
  Serious: Yes (Hospitalization)
  Sender: FDA-Public Use
  Company Number: FR-AMGEN-FRASP2013020636

PATIENT
  Age: 46 Year
  Sex: Male

DRUGS (5)
  1. MIMPARA [Suspect]
     Indication: PRODUCT USED FOR UNKNOWN INDICATION
     Dosage: 60 MG, UNK
     Route: 048
  2. EUPRESSYL [Suspect]
     Dosage: 3 DF IN 1 DAY
     Route: 048
  3. TEMERIT [Suspect]
     Dosage: 5 MG, UNK
     Route: 048
  4. CACIT D3 [Suspect]
     Dosage: 500 MG/440 UI; 2DF IN A 1 DAY
     Route: 048
     Dates: end: 20120620
  5. CORTICOSTEROIDS [Concomitant]

REACTIONS (2)
  - Confusional state [Recovering/Resolving]
  - Intestinal obstruction [Recovering/Resolving]
